FAERS Safety Report 12899831 (Version 4)
Quarter: 2017Q1

REPORT INFORMATION
  Report Type: Spontaneous
  Country: JP (occurrence: JP)
  Receive Date: 20161101
  Receipt Date: 20170213
  Transmission Date: 20170428
  Serious: Yes (Hospitalization)
  Sender: FDA-Public Use
  Company Number: JP-PFIZER INC-2016496739

PATIENT
  Age: 29 Year
  Sex: Female
  Weight: 73.5 kg

DRUGS (24)
  1. EFFEXOR [Suspect]
     Active Substance: VENLAFAXINE HYDROCHLORIDE
     Indication: DEPRESSION
     Dosage: 37.5 MG, 1X/DAY (AFTER DINNER)
     Route: 048
     Dates: start: 20160816, end: 20160822
  2. EFFEXOR [Suspect]
     Active Substance: VENLAFAXINE HYDROCHLORIDE
     Dosage: 75 MG, 2X/DAY (AFTER BREAKFAST AND DINNER)
     Route: 048
     Dates: start: 20160829, end: 20160912
  3. LAMICTAL [Suspect]
     Active Substance: LAMOTRIGINE
     Dosage: 15 MG, 1X/DAY (AFTER DINNER)
     Route: 048
     Dates: start: 20160816, end: 20160912
  4. TAKECAB [Concomitant]
     Active Substance: VONOPRAZAN FUMURATE
     Dosage: 20 MG, 1X/DAY AFTER BREAKFAST
     Route: 048
     Dates: start: 20160913, end: 20160913
  5. ZOPICLONE [Concomitant]
     Active Substance: ZOPICLONE
     Indication: INSOMNIA
     Dosage: 10 MG, 1X/DAY (BEFORE SLEEPING)
     Route: 048
     Dates: start: 20160802, end: 20161010
  6. KEISHIBUKURYOGANKAYOKUININ [Concomitant]
     Active Substance: HERBALS
     Indication: HOT FLUSH
     Dosage: 2.5 G, 2X/DAY (BEFORE BREAKFAST AND DINNER)
     Route: 048
     Dates: start: 20160802, end: 20160902
  7. ORENGEDOKUTO [Concomitant]
     Active Substance: HERBALS
     Indication: HOT FLUSH
     Dosage: 2.5 G, 1X/DAY (AFTER DINNER)
     Route: 048
     Dates: start: 20160829, end: 20160912
  8. TOKAKUJYOKITO [Concomitant]
     Indication: CONSTIPATION
  9. CALONAL [Concomitant]
     Active Substance: ACETAMINOPHEN
     Indication: ARTHRALGIA
     Dosage: UNK
     Dates: start: 20160816
  10. TAKECAB [Concomitant]
     Active Substance: VONOPRAZAN FUMURATE
     Indication: GASTRIC ULCER
     Dosage: 10 MG, 1X/DAY (AFTER BREAKFAST)
     Route: 048
     Dates: start: 20160829, end: 20160912
  11. LAMICTAL [Suspect]
     Active Substance: LAMOTRIGINE
     Indication: DEPRESSION
     Dosage: 25 MG, 1X/DAY (AFTER DINNER)
     Route: 048
     Dates: start: 20160802, end: 20160912
  12. MAGNESIUM OXIDE. [Concomitant]
     Active Substance: MAGNESIUM OXIDE
     Indication: CONSTIPATION
     Dosage: 2X/DAY (330MG AFTER BREAKFAST AND 660 MG AFTER DINNER)
     Route: 048
     Dates: start: 20160802, end: 20160926
  13. LITHIUM CARBONATE. [Concomitant]
     Active Substance: LITHIUM CARBONATE
     Dosage: 200 MG, 2X/DAY (AFTER BREAKFAST AND DINNER)
     Route: 048
     Dates: start: 20160802
  14. TOKAKUJYOKITO [Concomitant]
     Indication: HOT FLUSH
     Dosage: 2.5 G, 1X/DAY (AFTER DINNER)
     Route: 048
     Dates: start: 20160829, end: 20160912
  15. EFFEXOR [Suspect]
     Active Substance: VENLAFAXINE HYDROCHLORIDE
     Dosage: 75 MG, 1X/DAY (AFTER DINNER)
     Route: 048
     Dates: start: 20160823, end: 20160828
  16. EFFEXOR [Suspect]
     Active Substance: VENLAFAXINE HYDROCHLORIDE
     Dosage: 75 MG, 1X/DAY (AFTER DINNER)
     Route: 048
     Dates: start: 20160913, end: 20160913
  17. NEXIUM [Concomitant]
     Active Substance: ESOMEPRAZOLE MAGNESIUM
     Indication: GASTRIC ULCER
     Dosage: 20 MG, 1X/DAY (AFTER BREAKFAST)
     Route: 048
     Dates: start: 20160802, end: 20160828
  18. THYRADIN [Concomitant]
     Active Substance: LEVOTHYROXINE
     Indication: HYPOTHYROIDISM
     Dosage: 6.25 UG, 1X/DAY (ON SUNDAY, MONDAY, WEDNESDAY AND FRIDAY)
     Route: 048
     Dates: start: 20160802
  19. OGIKENCHUTO [Concomitant]
     Indication: HYPERHIDROSIS
     Dosage: 3X/DAY (3G BEFORE BREAKFAST, 6G BEFORE LUNCH AND 3G BEFORE DINNER)
     Route: 048
     Dates: start: 20160802, end: 20160912
  20. STICKZENOL A [Concomitant]
     Indication: MUSCULOSKELETAL STIFFNESS
     Dosage: 40 G, 1X/DAY
     Route: 062
     Dates: start: 20160802
  21. LAMICTAL [Suspect]
     Active Substance: LAMOTRIGINE
     Dosage: 5 MG, 1X/DAY (AFTER DINNER, ON TUESDAY, WEDNESDAY, THURSDAY, SATURDAY AND SUNDAY)
     Route: 048
     Dates: start: 20160802, end: 20160815
  22. NEXIUM [Concomitant]
     Active Substance: ESOMEPRAZOLE MAGNESIUM
     Dosage: 20 MG, 1X/DAY
     Route: 048
     Dates: start: 20160914
  23. LITHIUM CARBONATE. [Concomitant]
     Active Substance: LITHIUM CARBONATE
     Indication: DEPRESSION
     Dosage: 100 MG, 1X/DAY (AFTER DINNER)
     Route: 048
     Dates: start: 20160802, end: 20160912
  24. ALPRAZOLAM. [Concomitant]
     Active Substance: ALPRAZOLAM
     Indication: DEPRESSION
     Dosage: 0.4 MG, 1X/DAY (AT BEDTIME)
     Route: 048
     Dates: start: 20160802, end: 20161010

REACTIONS (13)
  - Malaise [Recovered/Resolved]
  - Nausea [Recovered/Resolved]
  - Diarrhoea [Unknown]
  - Headache [Unknown]
  - Drug eruption [Recovering/Resolving]
  - Insomnia [Unknown]
  - Palpitations [Recovered/Resolved]
  - Asthenia [Unknown]
  - Somnolence [Unknown]
  - Musculoskeletal stiffness [Unknown]
  - Fatigue [Unknown]
  - Oropharyngeal pain [Recovering/Resolving]
  - Abdominal discomfort [Recovering/Resolving]

NARRATIVE: CASE EVENT DATE: 201608
